FAERS Safety Report 10046750 (Version 1)
Quarter: 2014Q1

REPORT INFORMATION
  Report Type: Spontaneous
  Country: JP (occurrence: JP)
  Receive Date: 20140331
  Receipt Date: 20140331
  Transmission Date: 20141002
  Serious: Yes (Death, Other)
  Sender: FDA-Public Use
  Company Number: JP-TEVA-472373ISR

PATIENT
  Age: 50 Year
  Sex: Male

DRUGS (9)
  1. CISPLATIN [Suspect]
     Indication: DIFFUSE LARGE B-CELL LYMPHOMA
  2. ETOPOSIDE [Suspect]
  3. CYTARABINE [Suspect]
  4. DEXAMETHASONE [Suspect]
  5. METHYLPREDNISOLONE [Suspect]
     Indication: DIFFUSE LARGE B-CELL LYMPHOMA
  6. ADRIACIN [Suspect]
     Indication: DIFFUSE LARGE B-CELL LYMPHOMA
  7. RITUXIMAB [Suspect]
  8. CYCLOPHOSPHAMIDE [Suspect]
  9. VINCRISTINE [Suspect]

REACTIONS (3)
  - Pneumonia adenoviral [Fatal]
  - Respiratory failure [Fatal]
  - Cystitis haemorrhagic [Not Recovered/Not Resolved]
